FAERS Safety Report 5584000-4 (Version None)
Quarter: 2008Q1

REPORT INFORMATION
  Report Type: 
  Country: None (occurrence: None)
  Receive Date: 20080103
  Receipt Date: 20071220
  Transmission Date: 20080703
  Serious: Yes (Other)
  Sender: FDA-Public Use
  Company Number: MC200700751

PATIENT
  Age: 68 Year
  Sex: Female

DRUGS (2)
  1. ANGIOMAX [Suspect]
     Indication: PERCUTANEOUS CORONARY INTERVENTION
     Dosage: 0.75 MG/KG, BOLUS, IV BOLUS,
     Route: 040
     Dates: start: 20071219, end: 20071219
  2. ANGIOMAX [Suspect]
     Dosage: 1.74 MG/KG, HR, INTRAVENOUS
     Route: 042
     Dates: start: 20071219, end: 20071219

REACTIONS (2)
  - CORONARY ARTERY DISSECTION [None]
  - CORONARY ARTERY THROMBOSIS [None]
